FAERS Safety Report 12161134 (Version 2)
Quarter: 2016Q1

REPORT INFORMATION
  Report Type: Spontaneous
  Country: IT (occurrence: IT)
  Receive Date: 20160308
  Receipt Date: 20160328
  Transmission Date: 20160526
  Serious: Yes (Hospitalization)
  Sender: FDA-Public Use
  Company Number: IT-ASTRAZENECA-2016SE22416

PATIENT
  Age: 4292 Week
  Sex: Male

DRUGS (10)
  1. SEQUACOR [Suspect]
     Active Substance: BISOPROLOL
     Route: 048
  2. NORVASC [Suspect]
     Active Substance: AMLODIPINE BESYLATE
     Route: 048
  3. DIDROGYL [Suspect]
     Active Substance: CALCIFEDIOL
     Dosage: 1.5 MG/10 ML (20 GTT, ONCE A WEEK)
     Route: 048
  4. POTASSIUM CANRENOATE [Suspect]
     Active Substance: CANRENOATE POTASSIUM
     Route: 048
  5. ALLOPURINOL. [Suspect]
     Active Substance: ALLOPURINOL
     Route: 048
  6. AXAGON [Suspect]
     Active Substance: ESOMEPRAZOLE
     Dosage: 20 MG GASTRO-RESISTANT TABLETS, DAILY
     Route: 048
  7. ARANESP [Suspect]
     Active Substance: DARBEPOETIN ALFA
     Route: 058
  8. LASIX [Suspect]
     Active Substance: FUROSEMIDE
     Route: 048
  9. SPIRIVA [Suspect]
     Active Substance: TIOTROPIUM BROMIDE MONOHYDRATE
     Dosage: 18 MCG HARD CAPSULES, DAILY
     Route: 055
  10. TIKLID [Suspect]
     Active Substance: TICLOPIDINE HYDROCHLORIDE
     Route: 048

REACTIONS (4)
  - Diarrhoea [Unknown]
  - Pyrexia [Unknown]
  - Toxic skin eruption [Unknown]
  - Drug hypersensitivity [Unknown]

NARRATIVE: CASE EVENT DATE: 20160116
